FAERS Safety Report 8456917-4 (Version None)
Quarter: 2012Q2

REPORT INFORMATION
  Report Type: 
  Country: None (occurrence: None)
  Receive Date: 20120621
  Receipt Date: 20120615
  Transmission Date: 20120825
  Serious: Yes (Hospitalization)
  Sender: FDA-Public Use
  Company Number: US-BAXTER-2012BAX007870

PATIENT
  Sex: Male

DRUGS (3)
  1. DIANEAL [Suspect]
     Indication: PERITONEAL DIALYSIS
     Route: 033
  2. LYRICA [Suspect]
     Route: 065
  3. DIANEAL [Suspect]
     Route: 033

REACTIONS (4)
  - WHITE BLOOD CELL COUNT INCREASED [None]
  - ADVERSE DRUG REACTION [None]
  - HYPOTENSION [None]
  - DIZZINESS [None]
